FAERS Safety Report 8042413-5 (Version None)
Quarter: 2012Q1

REPORT INFORMATION
  Report Type: 
  Country: None (occurrence: None)
  Receive Date: 20120112
  Receipt Date: 20120105
  Transmission Date: 20120608
  Serious: Yes (Hospitalization)
  Sender: FDA-Public Use
  Company Number: US-GENZYME-CAMP-1002064

PATIENT
  Sex: Male
  Weight: 142 kg

DRUGS (3)
  1. BACLOFEN [Concomitant]
     Indication: MUSCLE SPASMS
     Dosage: 20 MG, TID
     Route: 048
  2. ALEMTUZUMAB [Suspect]
     Indication: MULTIPLE SCLEROSIS
     Route: 042
  3. AMOXICILLIN [Concomitant]
     Indication: NASOPHARYNGITIS
     Dosage: 600 MG, BID
     Route: 048
     Dates: start: 20120101, end: 20120105

REACTIONS (1)
  - MULTIPLE SCLEROSIS RELAPSE [None]
